FAERS Safety Report 16446011 (Version 1)
Quarter: 2019Q2

REPORT INFORMATION
  Report Type: Report from Study
  Country: IT (occurrence: IT)
  Receive Date: 20190618
  Receipt Date: 20190618
  Transmission Date: 20190711
  Serious: Yes (Other)
  Sender: FDA-Public Use
  Company Number: IT-PFIZER INC-2019257129

PATIENT
  Age: 71 Year
  Sex: Male

DRUGS (10)
  1. LEDERFOLIN [Concomitant]
     Active Substance: LEUCOVORIN CALCIUM
     Dosage: 7.5 MG, UNK
  2. PANTORC [Concomitant]
     Active Substance: PANTOPRAZOLE SODIUM
     Dosage: 20 MG, UNK
  3. PLAUNAC [Concomitant]
     Active Substance: OLMESARTAN MEDOXOMIL
     Dosage: 20 MG, UNK
  4. DIBASE [Concomitant]
     Active Substance: CHOLECALCIFEROL
  5. METHOTREXATE. [Suspect]
     Active Substance: METHOTREXATE
     Indication: RHEUMATOID ARTHRITIS
     Dosage: 2.5 MG, WEEKLY
     Route: 048
     Dates: start: 20061101, end: 20190415
  6. CORDARONE [Concomitant]
     Active Substance: AMIODARONE HYDROCHLORIDE
     Dosage: 200 MG, UNK
  7. RIVAROXABAN [Concomitant]
     Active Substance: RIVAROXABAN
  8. FOSAMAX [Concomitant]
     Active Substance: ALENDRONATE SODIUM
     Dosage: 70 MG, UNK
  9. DELTACORTENE [Concomitant]
     Active Substance: PREDNISONE
     Dosage: 5 MG, UNK
  10. ORENCIA [Suspect]
     Active Substance: ABATACEPT
     Indication: RHEUMATOID ARTHRITIS
     Dosage: 125 MG, WEEKLY
     Route: 058
     Dates: start: 20131201, end: 20190415

REACTIONS (1)
  - Squamous cell carcinoma of the tongue [Not Recovered/Not Resolved]

NARRATIVE: CASE EVENT DATE: 20190415
